FAERS Safety Report 8987544 (Version 7)
Quarter: 2014Q3

REPORT INFORMATION
  Report Type: Report from Study
  Country: US (occurrence: US)
  Receive Date: 20121227
  Receipt Date: 20140810
  Transmission Date: 20150326
  Serious: Yes (Hospitalization, Other)
  Sender: FDA-Public Use
  Company Number: PHEH2012US025246

PATIENT
  Age: 56 Year
  Sex: Female
  Weight: 61.22 kg

DRUGS (19)
  1. HYDROCODONE [Concomitant]
     Active Substance: HYDROCODONE
     Dosage: UNK UKN, UNK
     Route: 048
  2. HYDROCHLOROTHIAZIDE. [Concomitant]
     Active Substance: HYDROCHLOROTHIAZIDE
     Dosage: 25 MG, QD
     Route: 048
  3. ARICEPT [Concomitant]
     Active Substance: DONEPEZIL HYDROCHLORIDE
     Dosage: 10 MG, QD
     Route: 048
  4. XANAX [Concomitant]
     Active Substance: ALPRAZOLAM
     Dosage: 0.5 MG, BID (PRN)
  5. VITAMIN D [Concomitant]
     Active Substance: CHOLECALCIFEROL
     Dosage: 2000 IU, QD
     Route: 048
  6. ACEPROMAZINE [Concomitant]
     Active Substance: ACEPROMAZINE
  7. LORTAB [Concomitant]
     Active Substance: ACETAMINOPHEN\HYDROCODONE BITARTRATE
  8. COREG [Concomitant]
     Active Substance: CARVEDILOL
     Dosage: 6.25 MG, BID
     Route: 048
  9. PROVIGIL [Concomitant]
     Active Substance: MODAFINIL
     Dosage: 200 MG, QD (MORNING)
     Route: 048
  10. CYMBALTA [Concomitant]
     Active Substance: DULOXETINE HYDROCHLORIDE
     Dosage: 120 MG, QD
  11. LYRICA [Concomitant]
     Active Substance: PREGABALIN
     Dosage: 100 MG, TID
  12. CYMBALTA [Concomitant]
     Active Substance: DULOXETINE HYDROCHLORIDE
     Dosage: 60 MG QD
     Route: 048
  13. RESTORIL [Concomitant]
     Active Substance: TEMAZEPAM
     Dosage: 30 MG, QHS
  14. ACTHAR [Concomitant]
     Active Substance: CORTICOTROPIN
     Dosage: 80 U/MLPRN
  15. NORCO [Concomitant]
     Active Substance: ACETAMINOPHEN\HYDROCODONE BITARTRATE
     Dosage: 325-7.5 MG QD
     Route: 048
  16. VISTARIL [Concomitant]
     Active Substance: HYDROXYZINE PAMOATE
     Dosage: 25 MG, TID
     Route: 048
  17. ARICEPT [Concomitant]
     Active Substance: DONEPEZIL HYDROCHLORIDE
     Dosage: 100 MG, QHS
  18. GILENYA [Suspect]
     Active Substance: FINGOLIMOD HYDROCHLORIDE
     Indication: MULTIPLE SCLEROSIS
     Dosage: 0.5 MG, QD
     Route: 048
     Dates: start: 20121221
  19. COREG [Concomitant]
     Active Substance: CARVEDILOL
     Dosage: 12.5 MG BID
     Route: 048

REACTIONS (20)
  - Dry skin [Unknown]
  - Body temperature decreased [Unknown]
  - Glomerular filtration rate decreased [Unknown]
  - Bacterial test positive [Unknown]
  - Drug ineffective [Unknown]
  - Pain in extremity [Unknown]
  - Left atrial dilatation [Unknown]
  - Analgesic drug level decreased [Unknown]
  - Blood glucose increased [Unknown]
  - Urinary sediment present [Unknown]
  - Skin warm [Unknown]
  - Myocardial infarction [Unknown]
  - Coronary artery disease [Unknown]
  - Urine abnormality [Unknown]
  - Protein total decreased [Unknown]
  - Hypotension [Recovered/Resolved]
  - Skin discolouration [Unknown]
  - Red cell distribution width increased [Unknown]
  - Dizziness [Unknown]
  - Urine leukocyte esterase positive [Unknown]

NARRATIVE: CASE EVENT DATE: 20121221
